FAERS Safety Report 4761573-2 (Version None)
Quarter: 2005Q3

REPORT INFORMATION
  Report Type: 
  Country: None (occurrence: None)
  Receive Date: 20050826
  Receipt Date: 20050118
  Transmission Date: 20060218
  Serious: Yes (Death, Other)
  Sender: FDA-Public Use
  Company Number: USA-2005-0018404

PATIENT
  Age: 19 Year
  Sex: Male
  Weight: 93 kg

DRUGS (3)
  1. OXYCONTIN [Suspect]
     Dosage: MG
  2. OXYMORPHONE HYDROCHLORIDE [Suspect]
  3. ALCOHOL (ETHAMOL) [Suspect]

REACTIONS (3)
  - DRUG ABUSER [None]
  - OVERDOSE [None]
  - POLYSUBSTANCE ABUSE [None]
